FAERS Safety Report 17342597 (Version 1)
Quarter: 2020Q1

REPORT INFORMATION
  Report Type: Spontaneous
  Country: US (occurrence: US)
  Receive Date: 20200129
  Receipt Date: 20200129
  Transmission Date: 20200409
  Serious: No
  Sender: FDA-Public Use
  Company Number: US-ALLERGAN-1931961US

PATIENT
  Sex: Female

DRUGS (3)
  1. ANTI-ANXIETY MEDICATION (UNSPECIFIED) [Concomitant]
     Indication: ANXIETY
     Dosage: UNK
  2. BOTOX COSMETIC [Suspect]
     Active Substance: ONABOTULINUMTOXINA
     Indication: SKIN WRINKLING
     Dosage: 16 UNITS, SINGLE
     Dates: start: 201907, end: 201907
  3. DEPRESSION MEDICATION (UNSPECIFIED) [Concomitant]
     Indication: DEPRESSION
     Dosage: UNK

REACTIONS (1)
  - Drug ineffective [Unknown]

NARRATIVE: CASE EVENT DATE: 201907
